FAERS Safety Report 8163591-3 (Version None)
Quarter: 2012Q1

REPORT INFORMATION
  Report Type: 
  Country: None (occurrence: None)
  Receive Date: 20120224
  Receipt Date: 20120222
  Transmission Date: 20120608
  Serious: Yes (Death, Other)
  Sender: FDA-Public Use
  Company Number: GB-JNJFOC-20120211085

PATIENT
  Age: 54 Year
  Sex: Male

DRUGS (7)
  1. TEGRETOL [Suspect]
     Route: 065
     Dates: start: 20030708, end: 20060126
  2. MELOXICAM [Concomitant]
     Indication: ARTHRALGIA
     Route: 048
     Dates: start: 20030512
  3. TEGRETOL [Suspect]
     Route: 065
  4. TEGRETOL [Suspect]
     Route: 065
  5. ACETAMINOPHEN WITH PROPOXYPHENE HCL TAB [Concomitant]
     Indication: ANALGESIC THERAPY
     Route: 048
  6. CODEINE PHOSPHATE AND ACETAMINOPHEN [Suspect]
     Indication: ANALGESIC THERAPY
     Route: 065
  7. TEGRETOL [Suspect]
     Indication: EPILEPSY
     Route: 065

REACTIONS (5)
  - CEREBRAL HAEMORRHAGE [None]
  - HYPERSENSITIVITY [None]
  - MALAISE [None]
  - LOSS OF CONSCIOUSNESS [None]
  - DYSPNOEA [None]
